FAERS Safety Report 11042651 (Version 2)
Quarter: 2015Q2

REPORT INFORMATION
  Report Type: Spontaneous
  Country: US (occurrence: US)
  Receive Date: 20150416
  Receipt Date: 20150525
  Transmission Date: 20150821
  Serious: No
  Sender: FDA-Public Use
  Company Number: US-JNJFOC-20130401082

PATIENT
  Sex: Female

DRUGS (10)
  1. ZOFRAN [Concomitant]
     Active Substance: ONDANSETRON HYDROCHLORIDE
     Indication: TRANSPLANT
     Route: 065
     Dates: start: 201211
  2. PREDNISONE. [Concomitant]
     Active Substance: PREDNISONE
     Indication: TRANSPLANT
     Route: 065
     Dates: start: 201211
  3. PROVENTIL [Concomitant]
     Active Substance: ALBUTEROL
     Indication: TRANSPLANT
     Route: 065
     Dates: start: 201211
  4. MYFORTIC [Concomitant]
     Active Substance: MYCOPHENOLATE SODIUM
     Indication: TRANSPLANT
     Route: 065
     Dates: start: 201211
  5. XARELTO [Suspect]
     Active Substance: RIVAROXABAN
     Indication: PULMONARY EMBOLISM
     Route: 048
     Dates: start: 201303
  6. BACTRIM [Concomitant]
     Active Substance: SULFAMETHOXAZOLE\TRIMETHOPRIM
     Indication: TRANSPLANT
     Route: 065
     Dates: start: 201211
  7. NORVASC [Concomitant]
     Active Substance: AMLODIPINE BESYLATE
     Indication: TRANSPLANT
     Route: 065
     Dates: start: 201211
  8. PROGRAF [Concomitant]
     Active Substance: TACROLIMUS\TACROLIMUS ANHYDROUS
     Indication: TRANSPLANT
     Route: 065
     Dates: start: 201211
  9. NEXIUM [Concomitant]
     Active Substance: ESOMEPRAZOLE MAGNESIUM
     Indication: TRANSPLANT
     Route: 065
     Dates: start: 201211
  10. VALCYTE [Concomitant]
     Active Substance: VALGANCICLOVIR HYDROCHLORIDE
     Indication: TRANSPLANT
     Route: 065
     Dates: start: 201211

REACTIONS (4)
  - Coagulation factor X level increased [Unknown]
  - Haemoglobin decreased [Unknown]
  - Diarrhoea [Unknown]
  - Abdominal distension [Unknown]
